FAERS Safety Report 11619380 (Version 2)
Quarter: 2015Q4

REPORT INFORMATION
  Report Type: Other
  Country: IT (occurrence: IT)
  Receive Date: 20151012
  Receipt Date: 20151021
  Transmission Date: 20160304
  Serious: Yes (Other)
  Sender: FDA-Public Use
  Company Number: IT-MYLANLABS-2015M1034455

PATIENT

DRUGS (1)
  1. PACLITAXEL MYLAN GENERICS CONCENTRATE FOR SOLUTION FOR INFUSION [Suspect]
     Active Substance: PACLITAXEL
     Indication: BREAST CANCER
     Dosage: 110 MG WEEKLY
     Route: 042
     Dates: start: 20150807

REACTIONS (4)
  - Neutropenia [Recovering/Resolving]
  - Erythema [Recovering/Resolving]
  - Blister [Recovering/Resolving]
  - Pruritus [Recovering/Resolving]

NARRATIVE: CASE EVENT DATE: 20150912
